FAERS Safety Report 9681985 (Version 2)
Quarter: 2013Q4

REPORT INFORMATION
  Report Type: Spontaneous
  Country: US (occurrence: US)
  Receive Date: 20131111
  Receipt Date: 20131213
  Transmission Date: 20140711
  Serious: Yes (Other)
  Sender: FDA-Public Use
  Company Number: US-PFIZER INC-2013320884

PATIENT
  Sex: Female

DRUGS (1)
  1. ZOLOFT [Suspect]
     Indication: ANXIETY
     Dosage: UNK

REACTIONS (9)
  - Aphagia [Unknown]
  - Hypersensitivity [Unknown]
  - Abdominal pain upper [Unknown]
  - Nausea [Unknown]
  - Insomnia [Unknown]
  - Palpitations [Unknown]
  - Psychomotor hyperactivity [Unknown]
  - Movement disorder [Unknown]
  - Drug ineffective [Unknown]
